FAERS Safety Report 25311131 (Version 1)
Quarter: 2025Q2

REPORT INFORMATION
  Report Type: Report from Study
  Country: IT (occurrence: IT)
  Receive Date: 20250514
  Receipt Date: 20250514
  Transmission Date: 20250716
  Serious: Yes (Hospitalization)
  Sender: ABBVIE
  Company Number: IT-ABBVIE-6274489

PATIENT
  Age: 35 Year
  Sex: Male

DRUGS (1)
  1. SKYRIZI [Suspect]
     Active Substance: RISANKIZUMAB-RZAA
     Indication: Crohn^s disease
     Dosage: 360 MG WITH OBI?FREQUENCY TEXT: EVERY 8 WEEKS
     Route: 058
     Dates: start: 20240408

REACTIONS (2)
  - Intestinal obstruction [Recovering/Resolving]
  - White blood cell count increased [Not Recovered/Not Resolved]

NARRATIVE: CASE EVENT DATE: 20250507
